FAERS Safety Report 22519311 (Version 2)
Quarter: 2023Q2

REPORT INFORMATION
  Report Type: Other
  Country: CN (occurrence: CN)
  Receive Date: 20230605
  Receipt Date: 20230619
  Transmission Date: 20230722
  Serious: Yes (Hospitalization, Other)
  Sender: FDA-Public Use
  Company Number: CN-DEXPHARM-20231284

PATIENT
  Age: 34 Year
  Sex: Female

DRUGS (4)
  1. ESOMEPRAZOLE [Interacting]
     Active Substance: ESOMEPRAZOLE
     Indication: Helicobacter gastritis
     Dosage: 40MG DAILY BEFORE MEAL
     Route: 048
  2. BISMUTH [Concomitant]
     Active Substance: BISMUTH
     Indication: Helicobacter gastritis
     Dosage: 150MG THREE TIMES DAILY BEFORE MEALS
     Route: 048
  3. AMOXICILLIN [Interacting]
     Active Substance: AMOXICILLIN
     Indication: Helicobacter gastritis
     Dosage: 1G TWICE DAILY AFTER MEALS? (1G/G)
     Route: 048
  4. FURAZOLIDONE [Interacting]
     Active Substance: FURAZOLIDONE
     Indication: Helicobacter gastritis
     Dosage: 0.1G TWICE DAILY AFTER MEALS
     Route: 048

REACTIONS (3)
  - Drug-induced liver injury [Recovered/Resolved]
  - Anaphylactic shock [Recovered/Resolved]
  - Drug interaction [Recovered/Resolved]
